FAERS Safety Report 4974329-2 (Version None)
Quarter: 2006Q2

REPORT INFORMATION
  Report Type: 
  Country: None (occurrence: None)
  Receive Date: 20060417
  Receipt Date: 20060406
  Transmission Date: 20061013
  Serious: Yes (Hospitalization)
  Sender: FDA-Public Use
  Company Number: FR-BRISTOL-MYERS SQUIBB COMPANY-13340633

PATIENT
  Age: 56 Year
  Sex: Female
  Weight: 69 kg

DRUGS (6)
  1. VIDEX [Suspect]
     Route: 048
     Dates: start: 20050728
  2. KALETRA [Suspect]
     Route: 048
     Dates: start: 20050728
  3. HALDOL [Concomitant]
  4. MEDIATOR [Concomitant]
  5. ELISOR [Concomitant]
  6. ZIAGEN [Concomitant]
     Dates: start: 20050728

REACTIONS (1)
  - MENTAL DISORDER [None]
